FAERS Safety Report 4722892-9 (Version None)
Quarter: 2005Q3

REPORT INFORMATION
  Report Type: 
  Country: None (occurrence: None)
  Receive Date: 20050722
  Receipt Date: 20050616
  Transmission Date: 20060218
  Serious: Yes (Life-Threatening)
  Sender: FDA-Public Use
  Company Number: JP-BOEHRINGER INGELHEIM PHARMACEUTICALS, INC.-2005-BP-10211NB

PATIENT
  Age: 52 Year
  Sex: Male

DRUGS (7)
  1. PERSANTINE AMPULES [Suspect]
     Indication: SCINTIGRAPHY
     Route: 042
     Dates: start: 20050615, end: 20050615
  2. LASIX [Concomitant]
     Route: 048
  3. ASPIRIN [Concomitant]
     Route: 048
  4. BLOPRESS [Concomitant]
     Route: 048
  5. LIPITOR [Concomitant]
     Route: 048
  6. NITOROL R [Concomitant]
     Route: 048
  7. AMARYL [Concomitant]
     Route: 048

REACTIONS (2)
  - ATRIOVENTRICULAR BLOCK [None]
  - CARDIAC ARREST [None]
